FAERS Safety Report 20675455 (Version 1)
Quarter: 2022Q2

REPORT INFORMATION
  Report Type: Spontaneous
  Country: JP (occurrence: JP)
  Receive Date: 20220405
  Receipt Date: 20220405
  Transmission Date: 20220720
  Serious: Yes (Hospitalization, Other)
  Sender: FDA-Public Use
  Company Number: JP-SEBELA IRELAND LIMITED-2022SEB00013

PATIENT
  Age: 65 Year
  Sex: Female

DRUGS (5)
  1. AZATHIOPRINE [Suspect]
     Active Substance: AZATHIOPRINE
     Indication: Autoimmune hepatitis
     Dosage: 50 MG
     Route: 065
  2. ALLOPURINOL [Suspect]
     Active Substance: ALLOPURINOL
     Indication: Hyperuricaemia
     Route: 065
  3. URSODIOL [Concomitant]
     Active Substance: URSODIOL
     Indication: Autoimmune hepatitis
     Dosage: 600 MG
     Route: 065
  4. PREDNISOLONE [Concomitant]
     Active Substance: PREDNISOLONE
     Indication: Autoimmune hepatitis
     Dosage: 30 MG, 1X/DAY
     Route: 065
  5. PREDNISOLONE [Concomitant]
     Active Substance: PREDNISOLONE
     Dosage: 6 MG 1X/DAY
     Route: 065

REACTIONS (4)
  - Stomatitis [Recovered/Resolved]
  - Myelosuppression [Recovered/Resolved]
  - Alopecia [Recovered/Resolved]
  - Drug interaction [Recovered/Resolved]
